FAERS Safety Report 8063267-7 (Version None)
Quarter: 2012Q1

REPORT INFORMATION
  Report Type: 
  Country: None (occurrence: None)
  Receive Date: 20120123
  Receipt Date: 20120116
  Transmission Date: 20120608
  Serious: Yes (Other)
  Sender: FDA-Public Use
  Company Number: US-TEVA-318197USA

PATIENT
  Age: 48 Year
  Sex: Male

DRUGS (2)
  1. FLUOROURACIL [Suspect]
     Indication: CHEMOTHERAPY
  2. LEUCOVORIN CALCIUM [Concomitant]
     Indication: CHEMOTHERAPY

REACTIONS (1)
  - VENOOCCLUSIVE LIVER DISEASE [None]
